FAERS Safety Report 4713505-0 (Version None)
Quarter: 2005Q3

REPORT INFORMATION
  Report Type: 
  Country: None (occurrence: None)
  Receive Date: 20050707
  Receipt Date: 20050623
  Transmission Date: 20060218
  Serious: Yes (Hospitalization)
  Sender: FDA-Public Use
  Company Number: THYM-10492

PATIENT
  Age: 58 Year
  Sex: Female
  Weight: 93.1 kg

DRUGS (5)
  1. THYMOGLOBULIN [Suspect]
     Indication: RENAL TRANSPLANT
     Dosage: 100 MG QD IV
     Route: 042
     Dates: start: 20050406, end: 20050415
  2. TACROLIMUS [Concomitant]
  3. RAPAMUNE [Concomitant]
  4. PREDNISONE [Concomitant]
  5. MYCOPHENOLATE MFOETIL [Concomitant]

REACTIONS (8)
  - COMPLICATIONS OF TRANSPLANTED KIDNEY [None]
  - DIALYSIS [None]
  - IMPAIRED HEALING [None]
  - INCISION SITE COMPLICATION [None]
  - POSTOPERATIVE INFECTION [None]
  - RENAL TUBULAR NECROSIS [None]
  - WOUND INFECTION [None]
  - WOUND NECROSIS [None]
